FAERS Safety Report 5256019-4 (Version None)
Quarter: 2007Q1

REPORT INFORMATION
  Report Type: 
  Country: None (occurrence: None)
  Receive Date: 20070301
  Receipt Date: 20070220
  Transmission Date: 20070707
  Serious: Yes (Death, Other)
  Sender: FDA-Public Use
  Company Number: GXKR2007DE01561

PATIENT
  Age: 56 Year
  Sex: Female

DRUGS (6)
  1. CYCLOSPORINE [Suspect]
     Indication: PROPHYLAXIS
     Dosage: 5 MG/KG, QD,
  2. METHOTREXATE [Suspect]
     Indication: PROPHYLAXIS
     Dosage: 15 MG, 3 DOSES, INTRATHECAL
     Route: 037
  3. CARMUSTINE [Concomitant]
  4. MELPHALAN (MELPHALAN) [Concomitant]
  5. FLUDARABINE PHOSPHATE [Suspect]
     Dosage: 30 MG/M2, DAYS -9-TO-5
  6. MYCOPHENOLATE MOFETIL [Suspect]
     Indication: PROPHYLAXIS
     Dosage: 1 G, BID

REACTIONS (15)
  - ACUTE GRAFT VERSUS HOST DISEASE IN SKIN [None]
  - ACUTE RESPIRATORY DISTRESS SYNDROME [None]
  - BLOOD GLUCOSE INCREASED [None]
  - COMA [None]
  - CONVULSION [None]
  - DRUG LEVEL INCREASED [None]
  - DRUG TOXICITY [None]
  - EXTENSOR PLANTAR RESPONSE [None]
  - EYELID PTOSIS [None]
  - HYPERTENSION [None]
  - LEUKOENCEPHALOPATHY [None]
  - MUCOSAL INFLAMMATION [None]
  - MUSCULAR WEAKNESS [None]
  - NEUROTOXICITY [None]
  - RENAL IMPAIRMENT [None]
